FAERS Safety Report 4498873-X (Version None)
Quarter: 2004Q4

REPORT INFORMATION
  Report Type: 
  Country: None (occurrence: None)
  Receive Date: 20040927
  Receipt Date: 20040622
  Transmission Date: 20050328
  Serious: No
  Sender: FDA-Public Use
  Company Number: USA040670789

PATIENT
  Age: 5 Year
  Sex: Male

DRUGS (2)
  1. STRATTERA [Suspect]
     Indication: MOOD SWINGS
     Dosage: 60 MG/1 AT BEDTIME
     Dates: start: 20040401
  2. DEPAKOTE (VALSARTAN SEMISODIUM) [Concomitant]

REACTIONS (3)
  - DREAMY STATE [None]
  - HALLUCINATION [None]
  - TREMOR [None]
